FAERS Safety Report 14113101 (Version 1)
Quarter: 2017Q4

REPORT INFORMATION
  Report Type: Spontaneous
  Country: US (occurrence: US)
  Receive Date: 20171023
  Receipt Date: 20171023
  Transmission Date: 20180321
  Serious: No
  Sender: FDA-Public Use
  Company Number: US-ASTRAZENECA-2017SF07054

PATIENT
  Age: 14781 Day
  Sex: Male
  Weight: 74.8 kg

DRUGS (5)
  1. METOPROLOL TARTRATE. [Suspect]
     Active Substance: METOPROLOL TARTRATE
     Indication: CARDIAC DISORDER
     Route: 048
     Dates: start: 20160829
  2. ASPIRIN EC [Concomitant]
     Active Substance: ASPIRIN
     Indication: STENT PLACEMENT
     Dosage: 81.0MG UNKNOWN
     Dates: start: 20160829
  3. OMEPRAZOLE. [Suspect]
     Active Substance: OMEPRAZOLE
     Indication: DYSPEPSIA
     Route: 048
     Dates: start: 2013
  4. BRILINTA [Suspect]
     Active Substance: TICAGRELOR
     Indication: STENT PLACEMENT
     Route: 048
     Dates: start: 20160829
  5. CELECOXIB. [Concomitant]
     Active Substance: CELECOXIB
     Indication: ARTHRITIS
     Dates: start: 2012

REACTIONS (2)
  - Cardiac disorder [Unknown]
  - Blood alcohol increased [Unknown]

NARRATIVE: CASE EVENT DATE: 20170303
